FAERS Safety Report 5424769-2 (Version None)
Quarter: 2007Q3

REPORT INFORMATION
  Report Type: 
  Country: None (occurrence: None)
  Receive Date: 20070824
  Receipt Date: 20070821
  Transmission Date: 20080115
  Serious: Yes (Hospitalization)
  Sender: FDA-Public Use
  Company Number: US-RB-007772-07

PATIENT
  Age: 34 Year
  Sex: Male

DRUGS (11)
  1. SUBOXONE [Suspect]
     Route: 060
     Dates: start: 20070718, end: 20070722
  2. DEPAKOTE [Concomitant]
     Indication: MOOD SWINGS
     Dosage: DOSAGE UNKNOWN
     Route: 048
     Dates: start: 20070723
  3. DEPAKOTE [Concomitant]
     Dosage: DOSAGE UNKNOWN
     Route: 048
     Dates: end: 20070717
  4. NEURONTIN [Concomitant]
     Indication: MOOD SWINGS
     Dosage: DOSAGE UNKNOWN
     Route: 048
     Dates: end: 20070717
  5. NEURONTIN [Concomitant]
     Dosage: DOSAGE UNKNOWN
     Route: 048
     Dates: start: 20070723
  6. KLONOPIN [Concomitant]
     Indication: MOOD SWINGS
     Dosage: DOSAGE UNKNOWN
     Route: 048
     Dates: start: 20070723
  7. KLONOPIN [Concomitant]
     Dosage: DOSAGE UNKNOWN
     Route: 048
     Dates: end: 20070717
  8. TRAZODONE HCL [Concomitant]
     Indication: INSOMNIA
     Dosage: DOSAGE UNKNOWN
     Route: 048
     Dates: start: 20070723
  9. TRAZODONE HCL [Concomitant]
     Dosage: DOSAGE UNKNOWN
     Route: 048
     Dates: end: 20070717
  10. ZOLOFT [Concomitant]
     Indication: DEPRESSION
     Dosage: DOSAGE UNKNOWN
     Route: 048
     Dates: end: 20070717
  11. ZOLOFT [Concomitant]
     Dosage: DOSAGE UNKNOWN
     Route: 048
     Dates: start: 20070723

REACTIONS (5)
  - AGITATION [None]
  - ANXIETY [None]
  - BLOOD PRESSURE DECREASED [None]
  - HEART RATE DECREASED [None]
  - MOOD SWINGS [None]
